FAERS Safety Report 18267450 (Version 2)
Quarter: 2020Q4

REPORT INFORMATION
  Report Type: Report from Study
  Country: JP (occurrence: JP)
  Receive Date: 20200915
  Receipt Date: 20201105
  Transmission Date: 20210113
  Serious: Yes (Other)
  Sender: FDA-Public Use
  Company Number: JP-BAUSCH-BL-2020-026299

PATIENT
  Age: 58 Year
  Sex: Male
  Weight: 83 kg

DRUGS (6)
  1. OXAROL [Concomitant]
     Active Substance: MAXACALCITOL
     Indication: PRODUCT USED FOR UNKNOWN INDICATION
     Dates: start: 20090511
  2. GENTACIN [Concomitant]
     Active Substance: GENTAMICIN SULFATE
     Indication: PRODUCT USED FOR UNKNOWN INDICATION
     Dates: start: 20191024, end: 20191101
  3. LUMICEF [Suspect]
     Active Substance: BRODALUMAB
     Indication: ERYTHRODERMIC PSORIASIS
     Route: 058
     Dates: start: 20170816, end: 20170830
  4. TALTZ [Concomitant]
     Active Substance: IXEKIZUMAB
     Indication: PRODUCT USED FOR UNKNOWN INDICATION
     Dates: start: 20190605
  5. LUMICEF [Suspect]
     Active Substance: BRODALUMAB
     Dosage: DURATION: 1 YEAR 6 MONTHS 29 DAYS
     Route: 058
     Dates: start: 20170913, end: 20190410
  6. WHITE PETROLATUM [Concomitant]
     Active Substance: PETROLATUM
     Indication: ERYTHRODERMIC PSORIASIS
     Route: 061
     Dates: start: 20101021

REACTIONS (2)
  - Basal cell carcinoma [Recovering/Resolving]
  - Malignant melanoma [Recovering/Resolving]

NARRATIVE: CASE EVENT DATE: 20191015
